FAERS Safety Report 5993517-X (Version None)
Quarter: 2008Q4

REPORT INFORMATION
  Report Type: 
  Country: None (occurrence: None)
  Receive Date: 20081211
  Receipt Date: 20081126
  Transmission Date: 20090506
  Serious: Yes (Disabling)
  Sender: FDA-Public Use
  Company Number: 2008AL012210

PATIENT
  Age: 50 Year
  Sex: Male

DRUGS (3)
  1. DICLOFENAC SODIUM [Suspect]
     Indication: CHEST PAIN
     Dosage: 50 MG;PO
     Route: 048
     Dates: start: 20081113, end: 20081114
  2. MIRTAZAPINE [Concomitant]
  3. ACETAMINOPHEN W/ CODEINE [Concomitant]

REACTIONS (2)
  - PRURITUS [None]
  - WHEEZING [None]
